FAERS Safety Report 26096139 (Version 2)
Quarter: 2025Q4

REPORT INFORMATION
  Report Type: Spontaneous
  Country: EU (occurrence: EU)
  Receive Date: 20251127
  Receipt Date: 20251226
  Transmission Date: 20260118
  Serious: Yes (Hospitalization, Other)
  Sender: AUROBINDO
  Company Number: EU-AstrazenecaRSG-4101-D926QC00001(Prod)000011

PATIENT
  Age: 62 Year
  Sex: Female
  Weight: 85 kg

DRUGS (24)
  1. CARBOPLATIN [Suspect]
     Active Substance: CARBOPLATIN
     Indication: Non-small cell lung cancer
     Dosage: 1.5 AUC, Q3W
  2. PACLITAXEL [Suspect]
     Active Substance: PACLITAXEL
     Indication: Non-small cell lung cancer
     Dosage: 80 MILLIGRAM/SQ. METER, QW
     Dates: start: 20250619, end: 20250904
  3. DOXORUBICIN [Suspect]
     Active Substance: DOXORUBICIN
     Indication: Non-small cell lung cancer
     Dosage: 60 MILLIGRAM/SQ. METER, Q3W
     Dates: start: 20250911, end: 20250911
  4. DOXORUBICIN [Suspect]
     Active Substance: DOXORUBICIN
     Dosage: 45 MILLIGRAM/SQ. METER, Q3W
     Dates: start: 20251010, end: 20251010
  5. DOXORUBICIN [Suspect]
     Active Substance: DOXORUBICIN
     Dosage: 45 MILLIGRAM/SQ. METER, Q3W
     Dates: start: 20251114, end: 20251114
  6. CYCLOPHOSPHAMIDE [Suspect]
     Active Substance: CYCLOPHOSPHAMIDE
     Indication: Non-small cell lung cancer
     Dosage: 600 MILLIGRAM/SQ. METER
     Dates: start: 20250911, end: 20250911
  7. CYCLOPHOSPHAMIDE [Suspect]
     Active Substance: CYCLOPHOSPHAMIDE
     Dosage: 450 MILLIGRAM/SQ. METER
     Dates: start: 20251010, end: 20251010
  8. CYCLOPHOSPHAMIDE [Suspect]
     Active Substance: CYCLOPHOSPHAMIDE
     Dosage: 450 MILLIGRAM/SQ. METER
     Dates: start: 20251114, end: 20251114
  9. PEMBROLIZUMAB [Suspect]
     Active Substance: PEMBROLIZUMAB
     Indication: Non-small cell lung cancer
     Dosage: 200 MILLIGRAM, Q3W (EVERY 3 WEEKS )
     Dates: start: 20250619, end: 20250911
  10. PEMBROLIZUMAB [Suspect]
     Active Substance: PEMBROLIZUMAB
     Dosage: 200 MILLIGRAM, Q3W (EVERY 3 WEEKS )
     Dates: start: 20250710, end: 20250710
  11. PEMBROLIZUMAB [Suspect]
     Active Substance: PEMBROLIZUMAB
     Dosage: 200 MILLIGRAM, Q3W (EVERY 3 WEEKS )
     Dates: start: 20250731, end: 20250731
  12. PEMBROLIZUMAB [Suspect]
     Active Substance: PEMBROLIZUMAB
     Dosage: 200 MILLIGRAM, Q3W (EVERY 3 WEEKS )
     Dates: start: 20250911, end: 20250911
  13. PEMBROLIZUMAB [Suspect]
     Active Substance: PEMBROLIZUMAB
     Dosage: 200 MILLIGRAM, Q3W (EVERY 3 WEEKS )
     Dates: start: 20250821, end: 20250821
  14. PEMBROLIZUMAB [Suspect]
     Active Substance: PEMBROLIZUMAB
     Dosage: 200 MILLIGRAM, Q3W (EVERY 3 WEEKS )
     Dates: start: 20251010, end: 20251010
  15. PEMBROLIZUMAB [Suspect]
     Active Substance: PEMBROLIZUMAB
     Dosage: 200 MILLIGRAM, Q3W (EVERY 3 WEEKS )
     Dates: start: 20251114, end: 20251114
  16. AMOXICILLIN [AMOXICILLIN TRIHYDRATE;CLAVULANATE POTASSIUM] [Concomitant]
     Indication: Acute kidney injury
     Dosage: UNK
     Route: 061
     Dates: start: 20250919, end: 20250923
  17. ACETAMINOPHEN [Concomitant]
     Active Substance: ACETAMINOPHEN
     Indication: Osteomalacia
     Dosage: 1000 MILLIGRAM, ONCE A DAY
     Dates: start: 20251010, end: 20251010
  18. ACETAMINOPHEN [Concomitant]
     Active Substance: ACETAMINOPHEN
     Dosage: 1000 MILLIGRAM, AS NECESSARY
     Route: 061
     Dates: start: 20250619
  19. BUTYLSCOPOLAMINE BROMIDE [Concomitant]
     Active Substance: BUTYLSCOPOLAMINE BROMIDE
     Indication: Abdominal pain
     Dosage: UNK UNK, AS NECESSARY
     Route: 061
     Dates: start: 20250619
  20. PIPERACILLIN SODIUM\TAZOBACTAM SODIUM [Concomitant]
     Active Substance: PIPERACILLIN SODIUM\TAZOBACTAM SODIUM
     Indication: Acute kidney injury
     Dosage: UNK UNK, AS NECESSARY
     Dates: start: 20250923, end: 20251001
  21. GRANISETRON HYDROCHLORIDE [Concomitant]
     Active Substance: GRANISETRON HYDROCHLORIDE
     Indication: Nausea
     Dosage: 2 MILLIGRAM, AS NECESSARY
     Route: 061
     Dates: start: 20250626
  22. LEVOTHYROXINE SODIUM [Concomitant]
     Active Substance: LEVOTHYROXINE SODIUM
     Indication: Hypothyroidism
     Dosage: 100 MILLIGRAM, ONCE A DAY
     Route: 061
     Dates: start: 1997
  23. AMLODIPINE BESYLATE\OLMESARTAN MEDOXOMIL [Concomitant]
     Active Substance: AMLODIPINE BESYLATE\OLMESARTAN MEDOXOMIL
     Indication: Hypertension
     Dosage: 1 DOSAGE FORM, DAILY
     Route: 061
  24. PREDNISONE [Concomitant]
     Active Substance: PREDNISONE
     Indication: Premedication
     Dosage: 50 MILLIGRAM, TWO TIMES A DAY
     Route: 061
     Dates: start: 20250618

REACTIONS (1)
  - Sepsis [Recovered/Resolved]

NARRATIVE: CASE EVENT DATE: 20251024
